FAERS Safety Report 4736727-1 (Version None)
Quarter: 2005Q3

REPORT INFORMATION
  Report Type: 
  Country: None (occurrence: None)
  Receive Date: 20050808
  Receipt Date: 20050808
  Transmission Date: 20060218
  Serious: Yes (Life-Threatening, Disabling)
  Sender: FDA-Public Use
  Company Number: None

PATIENT
  Age: 54 Year
  Sex: Female
  Weight: 55.9 kg

DRUGS (2)
  1. PREMPRO [Suspect]
     Indication: AMENORRHOEA
     Dosage: 1 TABLET, PO EVERY 4 DAYS D47
     Route: 048
  2. REMIFEMIN [Concomitant]

REACTIONS (8)
  - ARTHROPATHY [None]
  - BEDRIDDEN [None]
  - CONNECTIVE TISSUE DISORDER [None]
  - MALAISE [None]
  - MOBILITY DECREASED [None]
  - MOVEMENT DISORDER [None]
  - MUSCULOSKELETAL STIFFNESS [None]
  - PAIN [None]
